FAERS Safety Report 4387104-7 (Version None)
Quarter: 2004Q2

REPORT INFORMATION
  Report Type: 
  Country: None (occurrence: None)
  Receive Date: 20040630
  Receipt Date: 20040309
  Transmission Date: 20050107
  Serious: No
  Sender: FDA-Public Use
  Company Number: US-GLAXOSMITHKLINE-A0501945A

PATIENT
  Age: 71 Year
  Sex: Female

DRUGS (7)
  1. ADVAIR HFA [Suspect]
     Indication: ASTHMA
     Dosage: 1PUFF TWICE PER DAY
     Route: 055
  2. ALBUTEROL [Concomitant]
  3. SINGULAIR [Concomitant]
  4. DIOVAN [Concomitant]
  5. LOTREL [Concomitant]
  6. UNSPECIFIED MEDICATION [Concomitant]
     Indication: DRUG USE FOR UNKNOWN INDICATION
  7. MULTIVITAMIN [Concomitant]

REACTIONS (3)
  - CHEST PAIN [None]
  - HOARSENESS [None]
  - PHARYNGOLARYNGEAL PAIN [None]
